FAERS Safety Report 11784991 (Version 6)
Quarter: 2017Q3

REPORT INFORMATION
  Report Type: Report from Study
  Country: BR (occurrence: BR)
  Receive Date: 20151130
  Receipt Date: 20170822
  Transmission Date: 20171127
  Serious: Yes (Hospitalization)
  Sender: FDA-Public Use
  Company Number: BR-ROCHE-1666633

PATIENT
  Sex: Female
  Weight: 45 kg

DRUGS (5)
  1. PULMOZYME [Suspect]
     Active Substance: DORNASE ALFA
     Route: 065
     Dates: start: 2006
  2. AVAMYS [Concomitant]
     Active Substance: FLUTICASONE FUROATE
  3. PULMOZYME [Suspect]
     Active Substance: DORNASE ALFA
     Indication: CYSTIC FIBROSIS
     Route: 065
     Dates: start: 2010
  4. SERETIDE [Concomitant]
     Active Substance: FLUTICASONE PROPIONATE\SALMETEROL XINAFOATE
  5. AMIKACIN [Suspect]
     Active Substance: AMIKACIN
     Indication: PRODUCT USED FOR UNKNOWN INDICATION
     Route: 065

REACTIONS (16)
  - Cystic fibrosis [Not Recovered/Not Resolved]
  - Asthenia [Unknown]
  - Diarrhoea [Unknown]
  - Cachexia [Not Recovered/Not Resolved]
  - Abdominal distension [Unknown]
  - Malaise [Unknown]
  - Bone erosion [Unknown]
  - Pleural effusion [Unknown]
  - Fibromyalgia [Unknown]
  - Stress fracture [Not Recovered/Not Resolved]
  - Dehydration [Not Recovered/Not Resolved]
  - Sputum increased [Not Recovered/Not Resolved]
  - Pneumonia [Unknown]
  - Lung infection [Not Recovered/Not Resolved]
  - Dyspnoea [Unknown]
  - Impaired healing [Not Recovered/Not Resolved]
